FAERS Safety Report 12490778 (Version 1)
Quarter: 2016Q2

REPORT INFORMATION
  Report Type: Spontaneous
  Country: US (occurrence: US)
  Receive Date: 20160622
  Receipt Date: 20160622
  Transmission Date: 20160815
  Serious: Yes (Other)
  Sender: FDA-Public Use
  Company Number: US-JAZZ-2015-US-021161

PATIENT
  Age: 45 Year
  Sex: Female
  Weight: 65 kg

DRUGS (7)
  1. XYREM [Suspect]
     Active Substance: SODIUM OXYBATE
     Indication: CATAPLEXY
     Dosage: 2.5 G, BID
     Route: 048
     Dates: start: 201512
  2. XYREM [Suspect]
     Active Substance: SODIUM OXYBATE
     Indication: NARCOLEPSY
     Dosage: 2.25 G, BID
     Route: 048
     Dates: start: 20151202, end: 201512
  3. CENTRUM SILVER [Concomitant]
     Active Substance: MINERALS\VITAMINS
     Indication: PRODUCT USED FOR UNKNOWN INDICATION
     Dosage: UNK
     Dates: start: 20151201
  4. VITAMIN B12 [Concomitant]
     Active Substance: CYANOCOBALAMIN
     Indication: PRODUCT USED FOR UNKNOWN INDICATION
     Dosage: UNK
     Dates: start: 20151201
  5. XYREM [Suspect]
     Active Substance: SODIUM OXYBATE
     Dosage: 2.25 G, QD
     Route: 048
     Dates: start: 20151211, end: 20151215
  6. CARAFATE [Concomitant]
     Active Substance: SUCRALFATE
     Indication: ULCER
     Dosage: UNK
  7. ZANTAC [Concomitant]
     Active Substance: RANITIDINE HYDROCHLORIDE
     Indication: GASTRIC ULCER
     Dosage: UNK

REACTIONS (14)
  - Depression [Recovered/Resolved]
  - Nausea [Unknown]
  - Somnambulism [Unknown]
  - Somnolence [Unknown]
  - Visual acuity reduced [Not Recovered/Not Resolved]
  - Fatigue [Unknown]
  - Feeling cold [Unknown]
  - Hallucination [Unknown]
  - Ocular hyperaemia [Not Recovered/Not Resolved]
  - Asthenopia [Not Recovered/Not Resolved]
  - Abdominal distension [Unknown]
  - Vision blurred [Unknown]
  - Decreased appetite [Unknown]
  - Dry eye [Not Recovered/Not Resolved]

NARRATIVE: CASE EVENT DATE: 201512
